FAERS Safety Report 8684089 (Version 5)
Quarter: 2014Q1

REPORT INFORMATION
  Report Type: Spontaneous
  Country: US (occurrence: US)
  Receive Date: 20120726
  Receipt Date: 20140326
  Transmission Date: 20141002
  Serious: Yes (Other)
  Sender: FDA-Public Use
  Company Number: US-SANOFI-AVENTIS-2012SA050381

PATIENT
  Age: 54 Year
  Sex: Female

DRUGS (2)
  1. AMBIEN [Suspect]
     Indication: SLEEP DISORDER
     Route: 048
  2. SYNTHROID [Concomitant]
     Indication: THYROID DISORDER
     Dosage: EVERY MORNING AT 7:30
     Route: 048

REACTIONS (10)
  - Somnambulism [Unknown]
  - Road traffic accident [Unknown]
  - Impaired driving ability [Unknown]
  - Impaired driving ability [Unknown]
  - Amnesia [Unknown]
  - Speech disorder [Unknown]
  - Dizziness [Unknown]
  - Disorientation [Unknown]
  - Coordination abnormal [Unknown]
  - Wrong drug administered [Unknown]
